FAERS Safety Report 15068870 (Version 1)
Quarter: 2018Q2

REPORT INFORMATION
  Report Type: Report from Study
  Country: CN (occurrence: CN)
  Receive Date: 20180626
  Receipt Date: 20180626
  Transmission Date: 20180711
  Serious: Yes (Hospitalization)
  Sender: FDA-Public Use
  Company Number: CN-AMGEN-CHNCT2018085442

PATIENT
  Age: 70 Year
  Sex: Male

DRUGS (14)
  1. LEVOCARNITINE. [Concomitant]
     Active Substance: LEVOCARNITINE
     Indication: AZOTAEMIA
     Dosage: 1 G, 3 TIMES/WK
     Route: 041
     Dates: start: 20161223
  2. TRIMETAZIDINE HYDROCHLORIDE [Concomitant]
     Active Substance: TRIMETAZIDINE DIHYDROCHLORIDE
     Indication: CORONARY ARTERY DISEASE
     Dosage: 20 MG, TID
     Route: 065
     Dates: start: 2013
  3. LOW-MOLECULAR-WEIGHT HEPARIN CALCIUM [Concomitant]
     Active Substance: HEPARIN CALCIUM
     Indication: HAEMODIALYSIS
     Dosage: 6000 UNIT, 3 TIMES/WK
     Dates: start: 20170216
  4. CALCIUM ACETATE HYDROUS [Concomitant]
     Indication: HYPERPHOSPHATAEMIA
     Dosage: 1.2 G, TID
     Route: 048
     Dates: start: 20180426
  5. CLOPIDOGREL SULFATE [Concomitant]
     Active Substance: CLOPIDOGREL BISULFATE
     Indication: CORONARY ARTERY DISEASE
     Dosage: 100 MG, QD
     Dates: start: 2016
  6. METOPROLOL SUCCINATE. [Concomitant]
     Active Substance: METOPROLOL SUCCINATE
     Indication: HYPERTENSION
     Dosage: 0.5 MG, QD
     Route: 048
     Dates: start: 2007
  7. FOLIC ACID ALMUS [Concomitant]
     Active Substance: FOLIC ACID
     Indication: NEPHROGENIC ANAEMIA
     Dosage: 10 MG, TID
     Dates: start: 2016
  8. CINACALCET HCL [Suspect]
     Active Substance: CINACALCET HYDROCHLORIDE
     Indication: HYPERPARATHYROIDISM SECONDARY
     Dosage: 25 MG, QD
     Route: 048
     Dates: start: 20180308, end: 20180402
  9. KETON [Concomitant]
     Indication: AZOTAEMIA
     Dosage: 3780 MG, TID
     Route: 048
     Dates: start: 20170216
  10. CINACALCET HCL [Suspect]
     Active Substance: CINACALCET HYDROCHLORIDE
     Dosage: 25 MG, QD
     Route: 048
     Dates: start: 20180426
  11. LEVOCARNITINE. [Concomitant]
     Active Substance: LEVOCARNITINE
     Dosage: 1 G, 3 TIMES/WK
     Route: 041
     Dates: start: 20171102
  12. CALCIUM CARBONATE/VITAMIN D3 [Concomitant]
     Active Substance: CALCIUM CARBONATE\CHOLECALCIFEROL
     Indication: HYPOCALCAEMIA
     Dosage: 0.6 G, BID
     Route: 048
     Dates: start: 20180426
  13. JINSHUIBAO [Concomitant]
     Indication: AZOTAEMIA
     Dosage: 1.98 G, TID
     Route: 048
     Dates: start: 20170216
  14. ISOSORBIDE MONONITRATE. [Concomitant]
     Active Substance: ISOSORBIDE MONONITRATE
     Indication: CORONARY ARTERY DISEASE
     Dosage: 0.5 MG, QD
     Dates: start: 2016

REACTIONS (1)
  - Arteriovenous fistula site complication [Unknown]

NARRATIVE: CASE EVENT DATE: 20180515
